FAERS Safety Report 25649110 (Version 1)
Quarter: 2025Q3

REPORT INFORMATION
  Report Type: Spontaneous
  Country: EU (occurrence: EU)
  Receive Date: 20250806
  Receipt Date: 20250806
  Transmission Date: 20251020
  Serious: Yes (Other)
  Sender: BAYER HEALTHCARE PHARMACEUTICALS INC.
  Company Number: None

PATIENT
  Age: 32 Year
  Sex: Female

DRUGS (1)
  1. KYLEENA [Suspect]
     Active Substance: LEVONORGESTREL
     Indication: Contraception
     Dosage: 17.5?G/DAY
     Route: 015
     Dates: start: 20210611, end: 20250707

REACTIONS (4)
  - Maternal exposure during pregnancy [None]
  - Pregnancy with contraceptive device [Recovering/Resolving]
  - Drug ineffective [Recovering/Resolving]
  - Foetal death [None]

NARRATIVE: CASE EVENT DATE: 20250101
